FAERS Safety Report 5218696-3 (Version None)
Quarter: 2007Q1

REPORT INFORMATION
  Report Type: 
  Country: None (occurrence: None)
  Receive Date: 20070122
  Receipt Date: 20070108
  Transmission Date: 20070707
  Serious: Yes (Other)
  Sender: FDA-Public Use
  Company Number: 26226

PATIENT
  Age: 63 Year
  Sex: Male
  Weight: 127.0072 kg

DRUGS (8)
  1. NIASPAN [Suspect]
     Dates: start: 20040101, end: 20040101
  2. NIASPAN [Suspect]
     Dosage: 4000 MG QHS PO
     Route: 048
     Dates: start: 20070108, end: 20070108
  3. ASPIRIN [Concomitant]
  4. COREG [Concomitant]
  5. ACTOS [Concomitant]
  6. ALLOPURINOL SODIUM [Concomitant]
  7. TRICOR [Concomitant]
  8. NORVASC [Concomitant]

REACTIONS (6)
  - ACCIDENTAL EXPOSURE [None]
  - FEELING HOT [None]
  - FLUSHING [None]
  - INCORRECT DOSE ADMINISTERED [None]
  - MEDICATION ERROR [None]
  - PRURITUS [None]
